FAERS Safety Report 17918487 (Version 2)
Quarter: 2021Q1

REPORT INFORMATION
  Report Type: Spontaneous
  Country: US (occurrence: US)
  Receive Date: 20200619
  Receipt Date: 20210112
  Transmission Date: 20210419
  Serious: Yes (Other)
  Sender: FDA-Public Use
  Company Number: US-ASTRAZENECA-2020SE77665

PATIENT
  Age: 911 Month
  Sex: Male
  Weight: 95.3 kg

DRUGS (48)
  1. LISINOPRIL. [Concomitant]
     Active Substance: LISINOPRIL
  2. LIDOCAINE. [Concomitant]
     Active Substance: LIDOCAINE
  3. GLYBURIDE. [Concomitant]
     Active Substance: GLYBURIDE
  4. HYDROCHLOROTHIAZIDE. [Concomitant]
     Active Substance: HYDROCHLOROTHIAZIDE
  5. FOSINOPRIL [Concomitant]
     Active Substance: FOSINOPRIL
  6. CARVEDILOL. [Concomitant]
     Active Substance: CARVEDILOL
     Dates: start: 20190607
  7. GENTAMICIN. [Concomitant]
     Active Substance: GENTAMICIN
  8. AMLODIPINE BESYLATE. [Concomitant]
     Active Substance: AMLODIPINE BESYLATE
  9. METFORMIN [Concomitant]
     Active Substance: METFORMIN HYDROCHLORIDE
  10. CAPTOPRIL. [Concomitant]
     Active Substance: CAPTOPRIL
  11. DOXYCYCLINE. [Concomitant]
     Active Substance: DOXYCYCLINE
     Indication: ANTIBIOTIC THERAPY
     Route: 065
     Dates: start: 20150417
  12. AMOX/CLAVULA [Concomitant]
     Indication: INFECTION
     Dates: start: 20160629
  13. ASPIRIN. [Concomitant]
     Active Substance: ASPIRIN
     Indication: BLOOD PRESSURE MEASUREMENT
     Route: 065
     Dates: start: 2018
  14. INDOMETHACIN. [Concomitant]
     Active Substance: INDOMETHACIN
  15. GLIPIZIDE. [Concomitant]
     Active Substance: GLIPIZIDE
  16. VARDENAFIL [Concomitant]
     Active Substance: VARDENAFIL HYDROCHLORIDE
  17. PRILOSEC [Suspect]
     Active Substance: OMEPRAZOLE MAGNESIUM
     Indication: GASTROOESOPHAGEAL REFLUX DISEASE
     Dosage: GENERIC
     Route: 065
     Dates: start: 20170417
  18. HYDROXYZINE [Concomitant]
     Active Substance: HYDROXYZINE HYDROCHLORIDE
  19. TERAZOSIN [Concomitant]
     Active Substance: TERAZOSIN HYDROCHLORIDE
  20. SILDENAFIL CITRATE. [Concomitant]
     Active Substance: SILDENAFIL CITRATE
  21. AMOX/CLAVULA [Concomitant]
     Indication: ANTIBIOTIC THERAPY
     Dates: start: 20160629
  22. COMBIGAN [Concomitant]
     Active Substance: BRIMONIDINE TARTRATE\TIMOLOL MALEATE
     Dates: start: 20190607
  23. LATANOPROST. [Concomitant]
     Active Substance: LATANOPROST
     Dates: start: 20190607
  24. HYDROCORTISONE. [Concomitant]
     Active Substance: HYDROCORTISONE
  25. PRILOSEC OTC [Suspect]
     Active Substance: OMEPRAZOLE MAGNESIUM
     Indication: GASTROOESOPHAGEAL REFLUX DISEASE
     Route: 048
     Dates: start: 200407, end: 200701
  26. PROTONIX [Suspect]
     Active Substance: PANTOPRAZOLE SODIUM
     Indication: GASTROOESOPHAGEAL REFLUX DISEASE
     Route: 065
     Dates: start: 200107, end: 201912
  27. PROTONIX [Suspect]
     Active Substance: PANTOPRAZOLE SODIUM
     Indication: GASTROOESOPHAGEAL REFLUX DISEASE
     Route: 065
     Dates: start: 200103, end: 201012
  28. NOVOLOG [Concomitant]
     Active Substance: INSULIN ASPART
     Dates: start: 20190607
  29. RANITIDINE. [Concomitant]
     Active Substance: RANITIDINE
  30. ALPRAZOLAM. [Concomitant]
     Active Substance: ALPRAZOLAM
  31. TIMOLOL MALEATE. [Concomitant]
     Active Substance: TIMOLOL MALEATE
  32. ALLOPURINOL. [Concomitant]
     Active Substance: ALLOPURINOL
  33. PRILOSEC OTC [Suspect]
     Active Substance: OMEPRAZOLE MAGNESIUM
     Indication: GASTROOESOPHAGEAL REFLUX DISEASE
     Route: 048
     Dates: start: 200107, end: 201912
  34. FUROSEMIDE. [Concomitant]
     Active Substance: FUROSEMIDE
     Indication: DIURETIC THERAPY
     Route: 065
     Dates: start: 20190610
  35. LANTUS [Concomitant]
     Active Substance: INSULIN GLARGINE
     Dates: start: 20190607
  36. CIPROFLOXACIN. [Concomitant]
     Active Substance: CIPROFLOXACIN
  37. TRIAMCINOLON [Concomitant]
  38. TETRACYCLINE [Concomitant]
     Active Substance: TETRACYCLINE
  39. FINASTERIDE. [Concomitant]
     Active Substance: FINASTERIDE
     Indication: BENIGN PROSTATIC HYPERPLASIA
     Route: 065
     Dates: start: 20160326
  40. ATORVASTATIN [Concomitant]
     Active Substance: ATORVASTATIN
     Dates: start: 20190607
  41. BUPROPION HCL [Concomitant]
     Active Substance: BUPROPION HYDROCHLORIDE
     Dates: start: 20190607
  42. FERROUS SULFATE. [Concomitant]
     Active Substance: FERROUS SULFATE
     Dates: start: 20190607
  43. SIMVASTATIN. [Concomitant]
     Active Substance: SIMVASTATIN
  44. PRILOSEC [Suspect]
     Active Substance: OMEPRAZOLE MAGNESIUM
     Indication: GASTROOESOPHAGEAL REFLUX DISEASE
     Route: 048
     Dates: start: 200107, end: 201912
  45. PRILOSEC [Suspect]
     Active Substance: OMEPRAZOLE MAGNESIUM
     Indication: GASTROOESOPHAGEAL REFLUX DISEASE
     Route: 048
     Dates: start: 199801, end: 200201
  46. CHOLECALCIFEROL [Concomitant]
     Active Substance: CHOLECALCIFEROL
     Dates: start: 20190607
  47. VELTASSA [Concomitant]
     Active Substance: PATIROMER
     Dates: start: 20190607
  48. NITROFUR [Concomitant]
     Active Substance: NITROFURANTOIN

REACTIONS (4)
  - Chronic kidney disease [Not Recovered/Not Resolved]
  - Nephrogenic anaemia [Unknown]
  - Hyperparathyroidism secondary [Unknown]
  - End stage renal disease [Not Recovered/Not Resolved]

NARRATIVE: CASE EVENT DATE: 201610
